FAERS Safety Report 8548267-2 (Version None)
Quarter: 2012Q3

REPORT INFORMATION
  Report Type: 
  Country: None (occurrence: None)
  Receive Date: 20120730
  Receipt Date: 20120719
  Transmission Date: 20120928
  Serious: Yes (Other)
  Sender: FDA-Public Use
  Company Number: US-JNJFOC-20120712332

PATIENT
  Sex: Male
  Weight: 119.75 kg

DRUGS (9)
  1. STELARA [Suspect]
     Route: 058
     Dates: start: 20120608, end: 20120608
  2. STELARA [Suspect]
     Indication: PSORIASIS
     Dosage: DOSE WAS CORRECTED TO 90 MG
     Route: 058
     Dates: start: 20120608
  3. METFORMIN HYDROCHLORIDE [Concomitant]
     Indication: TYPE 2 DIABETES MELLITUS
     Route: 065
  4. AMITRIPTYLINE HYDROCHLORIDE [Concomitant]
     Indication: BACK PAIN
     Route: 048
  5. METHOTREXATE [Concomitant]
     Indication: PSORIASIS
     Route: 048
     Dates: end: 20120101
  6. CYCLOBENAZPRINE [Concomitant]
     Indication: BACK PAIN
     Route: 048
     Dates: end: 20120101
  7. STELARA [Suspect]
     Indication: PSORIATIC ARTHROPATHY
     Dosage: DOSE WAS CORRECTED TO 90 MG
     Route: 058
     Dates: start: 20120608
  8. TRAMADOL HYDROCHLORIDE [Concomitant]
     Indication: BACK PAIN
     Route: 065
  9. STELARA [Suspect]
     Route: 058
     Dates: start: 20120608, end: 20120608

REACTIONS (4)
  - OFF LABEL USE [None]
  - SELF-MEDICATION [None]
  - BLOOD GLUCOSE INCREASED [None]
  - GLYCOSYLATED HAEMOGLOBIN INCREASED [None]
